FAERS Safety Report 22531315 (Version 1)
Quarter: 2023Q2

REPORT INFORMATION
  Report Type: Spontaneous
  Country: CA (occurrence: CA)
  Receive Date: 20230607
  Receipt Date: 20230607
  Transmission Date: 20230721
  Serious: Yes (Hospitalization, Other)
  Sender: FDA-Public Use
  Company Number: None

PATIENT
  Age: 78 Year
  Sex: Male

DRUGS (8)
  1. CAPECITABINE [Suspect]
     Active Substance: CAPECITABINE
     Indication: Adenocarcinoma gastric
     Route: 048
  2. CARBOPLATIN [Suspect]
     Active Substance: CARBOPLATIN
     Indication: Adenocarcinoma gastric
     Dosage: SOLUTION INTRAVENOUS
     Route: 065
  3. RALTITREXED [Suspect]
     Active Substance: RALTITREXED
     Indication: Adenocarcinoma gastric
     Dosage: POWDER FOR SOLUTION INTRAVENOUS, SINGLE USE VIAL
     Route: 065
  4. TRASTUZUMAB [Suspect]
     Active Substance: TRASTUZUMAB
     Indication: Adenocarcinoma gastric
     Route: 065
  5. FLUOROURACIL [Concomitant]
     Active Substance: FLUOROURACIL
  6. CISPLATIN [Concomitant]
     Active Substance: CISPLATIN
     Route: 042
  7. NITROGLYCERIN [Concomitant]
     Active Substance: NITROGLYCERIN
  8. PRIMOVIST [Concomitant]
     Active Substance: GADOXETATE DISODIUM
     Dosage: SOLUTION INTRAVENOUS

REACTIONS (6)
  - Acute myocardial infarction [Unknown]
  - Anaemia [Unknown]
  - Disease progression [Unknown]
  - Fatigue [Unknown]
  - Hepatic lesion [Unknown]
  - Myelosuppression [Unknown]
